FAERS Safety Report 4745385-1 (Version None)
Quarter: 2005Q3

REPORT INFORMATION
  Report Type: 
  Country: None (occurrence: None)
  Receive Date: 20050815
  Receipt Date: 20050729
  Transmission Date: 20060218
  Serious: Yes (Hospitalization)
  Sender: FDA-Public Use
  Company Number: 2005S1007051

PATIENT
  Age: 59 Year
  Sex: Female
  Weight: 68.0396 kg

DRUGS (16)
  1. FENTANYL [Suspect]
     Indication: PAIN
     Dosage: 100 MCG/HR; Q3D; TDER
     Dates: start: 20050518, end: 20050518
  2. OXYCODONE HCL [Concomitant]
  3. CAFFETEINE/BUTALBITAL/PARACETAMOL [Concomitant]
  4. CLONIDINE [Concomitant]
  5. MONTELUKAST SODIUM [Concomitant]
  6. ALPRAZOLAM [Concomitant]
  7. CODEINE PHOSPHATE/PROMETHAZINE HYDROCHLORIDE [Concomitant]
  8. SERTRALINE HYDROCHLORIDE [Concomitant]
  9. CARISOPRODOL [Concomitant]
  10. LEVOFLOXACIN [Concomitant]
  11. ZOLPIDEM TARTRATE [Concomitant]
  12. GUAIFENESIN/HYDROCODONE BITARTRATE [Concomitant]
  13. PROCHLORPERAZINE EDISYLATE [Concomitant]
  14. DONEPEZIL HYDROCHLORIDE [Concomitant]
  15. GUAIFENESIN/PSEUDOEPHEDRINE HYDROCHLORIDE [Concomitant]
  16. METOCLOPRAMIDE HYDROCHLORIDE [Concomitant]

REACTIONS (5)
  - DISORIENTATION [None]
  - EUPHORIC MOOD [None]
  - HYPERHIDROSIS [None]
  - OVERDOSE [None]
  - SOMNOLENCE [None]
